FAERS Safety Report 23940563 (Version 1)
Quarter: 2024Q2

REPORT INFORMATION
  Report Type: Spontaneous
  Country: DE (occurrence: DE)
  Receive Date: 20240605
  Receipt Date: 20240605
  Transmission Date: 20240716
  Serious: Yes (Other)
  Sender: FDA-Public Use
  Company Number: DE-CELLTRION HEALTHCARE HUNGARY KFT-2021DE006627

PATIENT
  Age: 57 Year
  Sex: Female
  Weight: 59 kg

DRUGS (20)
  1. DOCETAXEL [Suspect]
     Active Substance: DOCETAXEL\DOCETAXEL ANHYDROUS
     Indication: Breast cancer
     Dosage: 120 MG (DATE OF LAST DOSE (118 MG) APPLICATION PRIOR EVENT 10/DEC/2020) DATE OF LAST DOSE (118 MG) A
     Route: 065
     Dates: start: 20201118
  2. DOCETAXEL [Suspect]
     Active Substance: DOCETAXEL\DOCETAXEL ANHYDROUS
     Dosage: 120 MILLIGRAM ((DATE OF LAST DOSE (118 MG) APPLICATION PRIOR EVENT 04/JAN)
     Route: 065
     Dates: start: 20210104
  3. PERTUZUMAB [Suspect]
     Active Substance: PERTUZUMAB
     Indication: Breast cancer
     Dosage: 420 MG (DATE OF DOSE (420 MG) LAST APPLICATION PRIOR EVENT: 10/DEC/2020) DATE OF DOSE (420 MG) LAST
     Route: 042
     Dates: start: 20201210
  4. PERTUZUMAB [Suspect]
     Active Substance: PERTUZUMAB
     Dosage: 420 MILLIGRAM (DATE OF DOSE (420 MG) LAST APPLICATION PRIOR EVENT: 04/JAN/2021)
     Route: 065
     Dates: start: 20210104
  5. TRASTUZUMAB [Suspect]
     Active Substance: TRASTUZUMAB
     Indication: Breast cancer
     Dosage: 336 MG (DATE OF LAST DOSE (336 MG) APPLICATION PRIOR EVENT: 10/DEC/2020) DATE OF LAST DOSE (336 MG)
     Route: 041
     Dates: start: 20201210
  6. TRASTUZUMAB [Suspect]
     Active Substance: TRASTUZUMAB
     Dosage: 336 MILLIGRAM
     Route: 042
     Dates: start: 20210518
  7. TRASTUZUMAB [Suspect]
     Active Substance: TRASTUZUMAB
     Dosage: 336 MILLIGRAM  (DATE OF LAST DOSE (336 MG) APPLICATION PRIOR EVENT: 04/JAN/2021)
     Route: 041
     Dates: start: 20210604
  8. ZOLEDRONIC ACID [Suspect]
     Active Substance: ZOLEDRONIC ACID
     Indication: Metastases to bone
     Dosage: UNK, 4 WEEK (2ND DOSE ON 16/DEC/2020 AND 3RD DOSE ON 13/JAN/2021. DATE OF LAST DOSE (4 MG) APPLICATI
     Route: 065
     Dates: start: 20201118
  9. CALCIUM\CHOLECALCIFEROL [Concomitant]
     Active Substance: CALCIUM\CHOLECALCIFEROL
     Indication: Product used for unknown indication
     Dosage: 400 INTERNATIONAL UNIT
     Route: 048
     Dates: start: 20201118
  10. CALCIUM\CHOLECALCIFEROL [Concomitant]
     Active Substance: CALCIUM\CHOLECALCIFEROL
     Dosage: 500 MILLIGRAM
     Route: 048
     Dates: start: 20201118
  11. DEXAMETHASONE [Concomitant]
     Active Substance: DEXAMETHASONE
     Indication: Product used for unknown indication
     Dosage: 32 MILLIGRAM
     Route: 048
     Dates: start: 20201117, end: 20210106
  12. DEXAMETHASONE [Concomitant]
     Active Substance: DEXAMETHASONE
     Indication: Product used for unknown indication
     Dosage: 8 MG
     Route: 042
     Dates: start: 20201118
  13. Gynomunal [Concomitant]
     Indication: Product used for unknown indication
     Dosage: 2.5 GRAM
     Route: 061
     Dates: start: 20210208
  14. DIMETHINDENE MALEATE [Concomitant]
     Active Substance: DIMETHINDENE MALEATE
     Indication: Product used for unknown indication
     Dosage: 4 MG
     Route: 042
     Dates: start: 20201118
  15. Novalgin [Concomitant]
     Indication: Product used for unknown indication
     Dosage: 500 MG
     Route: 048
     Dates: start: 20210104
  16. OMEPRAZOLE [Concomitant]
     Active Substance: DONEPEZIL HYDROCHLORIDE\OMEPRAZOLE\OMEPRAZOLE MAGNESIUM
     Indication: Product used for unknown indication
     Dosage: 20 MILLIGRAM
     Route: 048
     Dates: start: 20210104
  17. ELIQUIS [Concomitant]
     Active Substance: APIXABAN
     Indication: Product used for unknown indication
     Dosage: 5 MILLIGRAM
     Route: 048
     Dates: start: 20210709
  18. Bepanthen [Concomitant]
     Indication: Product used for unknown indication
     Dosage: UNK
     Route: 061
     Dates: start: 20210622
  19. SEA SALT [Concomitant]
     Active Substance: SEA SALT
     Indication: Product used for unknown indication
     Dosage: UNK (0.5 DAILY)
     Route: 045
     Dates: start: 20211026
  20. BISOPROLOL [Concomitant]
     Active Substance: BISOPROLOL\BISOPROLOL FUMARATE
     Indication: Product used for unknown indication
     Dosage: 2.5 MILLIGRAM
     Route: 048
     Dates: start: 20210709

REACTIONS (10)
  - Atrial fibrillation [Recovered/Resolved]
  - Osteochondrosis [Not Recovered/Not Resolved]
  - Dysgeusia [Recovered/Resolved]
  - Dry skin [Not Recovered/Not Resolved]
  - Vulvovaginal dryness [Recovered/Resolved]
  - Abdominal pain upper [Recovered/Resolved]
  - Anaemia [Recovered/Resolved]
  - Back pain [Not Recovered/Not Resolved]
  - Left ventricular dysfunction [Recovered/Resolved]
  - Underdose [Unknown]

NARRATIVE: CASE EVENT DATE: 20201217
